FAERS Safety Report 11993658 (Version 1)
Quarter: 2016Q1

REPORT INFORMATION
  Report Type: Spontaneous
  Country: US (occurrence: US)
  Receive Date: 20160203
  Receipt Date: 20160203
  Transmission Date: 20160526
  Serious: No
  Sender: FDA-Public Use
  Company Number: US-PFIZER INC-2016004460

PATIENT
  Sex: Female

DRUGS (6)
  1. MORPHINE SULFATE. [Suspect]
     Active Substance: MORPHINE SULFATE
  2. SULINDAC. [Suspect]
     Active Substance: SULINDAC
  3. IODINE [Suspect]
     Active Substance: IODINE
  4. ARAVA [Suspect]
     Active Substance: LEFLUNOMIDE
  5. TETRACYCLINE HCL [Suspect]
     Active Substance: TETRACYCLINE HYDROCHLORIDE
  6. SODIUM SULAMYD [Suspect]
     Active Substance: SULFACETAMIDE SODIUM

REACTIONS (1)
  - Drug hypersensitivity [Not Recovered/Not Resolved]
